FAERS Safety Report 11540221 (Version 1)
Quarter: 2015Q3

REPORT INFORMATION
  Report Type: Spontaneous
  Country: CA (occurrence: CA)
  Receive Date: 20150923
  Receipt Date: 20150923
  Transmission Date: 20151125
  Serious: Yes (Life-Threatening, Hospitalization)
  Sender: FDA-Public Use
  Company Number: CA-TEVA-595371ACC

PATIENT
  Age: 71 Year
  Sex: Female
  Weight: 88.53 kg

DRUGS (1)
  1. AMOXICILLIN. [Suspect]
     Active Substance: AMOXICILLIN
     Indication: OTITIS MEDIA
     Route: 065

REACTIONS (5)
  - Loss of consciousness [Unknown]
  - Pruritus [Unknown]
  - Pulse absent [Unknown]
  - Hypotension [Unknown]
  - Tremor [Unknown]
